FAERS Safety Report 11604707 (Version 1)
Quarter: 2015Q3

REPORT INFORMATION
  Report Type: Spontaneous
  Country: US (occurrence: US)
  Receive Date: 20150916
  Receipt Date: 20150916
  Transmission Date: 20151125
  Serious: Yes (Hospitalization, Other)
  Sender: FDA-Public Use
  Company Number: US-ELI_LILLY_AND_COMPANY-US201404006682

PATIENT
  Age: 70 Year
  Sex: Male

DRUGS (4)
  1. HUMALOG MIX75/25 [Suspect]
     Active Substance: INSULIN LISPRO
     Indication: TYPE 2 DIABETES MELLITUS
     Dosage: 35 DF, EACH MORNING
     Route: 065
     Dates: start: 201312
  2. NOVOLIN R [Concomitant]
     Active Substance: INSULIN HUMAN
  3. HUMALOG [Suspect]
     Active Substance: INSULIN LISPRO
     Indication: PRODUCT USED FOR UNKNOWN INDICATION
     Dosage: UNK
     Route: 065
  4. HUMALOG MIX75/25 [Suspect]
     Active Substance: INSULIN LISPRO
     Dosage: 20 DF, EACH EVENING
     Route: 065
     Dates: start: 201312

REACTIONS (3)
  - Hypoglycaemic coma [Recovered/Resolved]
  - Wrong technique in product usage process [Unknown]
  - Intercepted product selection error [Unknown]
